FAERS Safety Report 20478829 (Version 1)
Quarter: 2022Q1

REPORT INFORMATION
  Report Type: Spontaneous
  Country: US (occurrence: US)
  Receive Date: 20220216
  Receipt Date: 20220216
  Transmission Date: 20220423
  Serious: No
  Sender: FDA-Public Use
  Company Number: US-BAUSCH-BL-2022-004133

PATIENT
  Sex: Male

DRUGS (5)
  1. ARAZLO [Suspect]
     Active Substance: TAZAROTENE
     Indication: Acne
     Route: 061
  2. ACCUTANE [Suspect]
     Active Substance: ISOTRETINOIN
     Indication: Acne
     Route: 048
     Dates: start: 202005, end: 202102
  3. DOXYCYCLINE [Suspect]
     Active Substance: DOXYCYCLINE
     Indication: Acne
     Route: 048
  4. BENZOYL PEROXIDE [Suspect]
     Active Substance: BENZOYL PEROXIDE
     Indication: Acne
     Dosage: WASH IN THE MORNING
     Route: 061
  5. WINLEVI [Suspect]
     Active Substance: CLASCOTERONE
     Indication: Acne
     Route: 065
     Dates: start: 2022

REACTIONS (1)
  - Acne [Not Recovered/Not Resolved]

NARRATIVE: CASE EVENT DATE: 20220101
